FAERS Safety Report 6600837-4 (Version None)
Quarter: 2010Q1

REPORT INFORMATION
  Report Type: 
  Country: None (occurrence: None)
  Receive Date: 20100225
  Receipt Date: 20100210
  Transmission Date: 20100710
  Serious: No
  Sender: FDA-Public Use
  Company Number: FI-ELI_LILLY_AND_COMPANY-FI201001005433

PATIENT
  Sex: Female

DRUGS (6)
  1. FORTEO [Suspect]
     Indication: OSTEOPOROSIS
     Dosage: 20 UG, DAILY (1/D)
     Route: 065
     Dates: start: 20060101, end: 20080101
  2. CORTISONE [Concomitant]
     Indication: RHEUMATOID ARTHRITIS
     Dosage: UNK, UNKNOWN
     Route: 065
  3. TRAMAL /00599201/ [Concomitant]
     Dosage: UNK, UNKNOWN
     Route: 065
     Dates: start: 20080602
  4. SERETIDE [Concomitant]
     Indication: BRONCHOMALACIA
     Dosage: UNK, DAILY (1/D)
     Route: 065
  5. ATROVENT [Concomitant]
     Indication: BRONCHOMALACIA
     Dosage: UNK, UNKNOWN
     Route: 065
  6. HEINIX [Concomitant]
     Indication: BRONCHOMALACIA
     Dosage: UNK, UNKNOWN
     Route: 065

REACTIONS (1)
  - CHROMATURIA [None]
